FAERS Safety Report 12317410 (Version 3)
Quarter: 2016Q3

REPORT INFORMATION
  Report Type: Spontaneous
  Country: US (occurrence: US)
  Receive Date: 20160429
  Receipt Date: 20160804
  Transmission Date: 20161109
  Serious: No
  Sender: FDA-Public Use
  Company Number: US-PFIZER INC-2016202454

PATIENT
  Age: 65 Year
  Sex: Male
  Weight: 112 kg

DRUGS (2)
  1. ADVIL [Suspect]
     Active Substance: IBUPROFEN
     Indication: BACK PAIN
     Dosage: 800 MG, DAILY FOR 3 DAYS
     Route: 048
     Dates: start: 20160403, end: 20160406
  2. ALEVE PM [Suspect]
     Active Substance: DIPHENHYDRAMINE HYDROCHLORIDE\NAPROXEN SODIUM
     Indication: SLEEP DISORDER
     Dosage: 20 MG, 1X/DAY (20 MG, DAY AT NIGHT)

REACTIONS (3)
  - Insomnia [Recovered/Resolved]
  - Dysgeusia [Recovered/Resolved]
  - Drug effect incomplete [Recovered/Resolved]
